FAERS Safety Report 9825890 (Version 1)
Quarter: 2013Q4

REPORT INFORMATION
  Report Type: Spontaneous
  Country: US (occurrence: None)
  Receive Date: 20131104
  Receipt Date: 20131104
  Transmission Date: 20140711
  Serious: No
  Sender: FDA-Public Use
  Company Number: 1000047726

PATIENT
  Sex: Female

DRUGS (3)
  1. DALIRESP [Suspect]
     Indication: EMPHYSEMA
     Route: 048
     Dates: start: 201304
  2. LASIX (FUROSEMIDE) [Suspect]
     Indication: CARDIAC FAILURE
     Dates: start: 20130805
  3. PREDNISONE (PREDNISONE) (PREDNISONE) [Concomitant]

REACTIONS (2)
  - Diarrhoea [None]
  - Weight decreased [None]
